FAERS Safety Report 14726209 (Version 1)
Quarter: 2018Q2

REPORT INFORMATION
  Report Type: Spontaneous
  Country: US (occurrence: US)
  Receive Date: 20180406
  Receipt Date: 20180406
  Transmission Date: 20180711
  Serious: No
  Sender: FDA-Public Use
  Company Number: US-VIFOR (INTERNATIONAL) INC.-VIT-2016-06846

PATIENT
  Sex: Male

DRUGS (11)
  1. IPRATROPIUM BROMIDE. [Concomitant]
     Active Substance: IPRATROPIUM BROMIDE
  2. COUMADIN [Concomitant]
     Active Substance: WARFARIN SODIUM
  3. ADVAIR HFA [Concomitant]
     Active Substance: FLUTICASONE PROPIONATE\SALMETEROL XINAFOATE
  4. ALLOPURINOL. [Concomitant]
     Active Substance: ALLOPURINOL
  5. LIPITOR [Concomitant]
     Active Substance: ATORVASTATIN CALCIUM
  6. ACETYLSALICYLIC ACID [Concomitant]
     Active Substance: ASPIRIN
  7. COREG [Concomitant]
     Active Substance: CARVEDILOL
  8. PATANASE [Concomitant]
     Active Substance: OLOPATADINE HYDROCHLORIDE
  9. VELTASSA [Suspect]
     Active Substance: PATIROMER
     Indication: HYPERKALAEMIA
     Route: 048
     Dates: start: 20160130
  10. NIFEDIPINE. [Concomitant]
     Active Substance: NIFEDIPINE
  11. LISINOPRIL. [Concomitant]
     Active Substance: LISINOPRIL

REACTIONS (2)
  - Product taste abnormal [Unknown]
  - Constipation [Not Recovered/Not Resolved]
